FAERS Safety Report 22907557 (Version 2)
Quarter: 2023Q4

REPORT INFORMATION
  Report Type: Spontaneous
  Country: CH (occurrence: CH)
  Receive Date: 20230905
  Receipt Date: 20231003
  Transmission Date: 20240109
  Serious: Yes (Other)
  Sender: FDA-Public Use
  Company Number: CH-PFIZER INC-202300246405

PATIENT
  Age: 86 Year
  Sex: Male

DRUGS (2)
  1. LORAZEPAM [Suspect]
     Active Substance: LORAZEPAM
     Indication: Depression
     Dosage: 1.5 DF, 3X/DAY, IN THE MORNING, NOON AND EVENING
     Dates: start: 2017, end: 2023
  2. LORAZEPAM [Suspect]
     Active Substance: LORAZEPAM
     Indication: Anxiety

REACTIONS (10)
  - Glaucoma [Unknown]
  - Mental impairment [Unknown]
  - Intentional product misuse [Unknown]
  - Feeling abnormal [Unknown]
  - Pain [Unknown]
  - Irritable bowel syndrome [Unknown]
  - Therapeutic response unexpected [Unknown]
  - Asthenia [Unknown]
  - Gait disturbance [Unknown]
  - Dizziness [Unknown]

NARRATIVE: CASE EVENT DATE: 20220101
